FAERS Safety Report 11573617 (Version 2)
Quarter: 2015Q4

REPORT INFORMATION
  Report Type: Spontaneous
  Country: HU (occurrence: HU)
  Receive Date: 20150929
  Receipt Date: 20151007
  Transmission Date: 20160304
  Serious: Yes (Other)
  Sender: FDA-Public Use
  Company Number: HU-PFIZER INC-2015321731

PATIENT
  Sex: Male

DRUGS (1)
  1. XANAX [Suspect]
     Active Substance: ALPRAZOLAM
     Dosage: 4MG TO 5MG DAILY, FOR 24 YEARS
     Route: 048
     Dates: start: 1991, end: 201504

REACTIONS (32)
  - Angina pectoris [Not Recovered/Not Resolved]
  - Tremor [Recovered/Resolved]
  - Bone pain [Not Recovered/Not Resolved]
  - Visual impairment [Not Recovered/Not Resolved]
  - Toothache [Not Recovered/Not Resolved]
  - Hepatic pain [Not Recovered/Not Resolved]
  - Thermohypoaesthesia [Not Recovered/Not Resolved]
  - Tongue discolouration [Not Recovered/Not Resolved]
  - Glossodynia [Not Recovered/Not Resolved]
  - Nausea [Not Recovered/Not Resolved]
  - Lymphadenopathy [Not Recovered/Not Resolved]
  - Headache [Not Recovered/Not Resolved]
  - Painful defaecation [Not Recovered/Not Resolved]
  - Gingival pain [Not Recovered/Not Resolved]
  - Abdominal distension [Not Recovered/Not Resolved]
  - Chest discomfort [Not Recovered/Not Resolved]
  - Faecal volume decreased [Not Recovered/Not Resolved]
  - Facial pain [Not Recovered/Not Resolved]
  - Speech disorder [Not Recovered/Not Resolved]
  - Ageusia [Not Recovered/Not Resolved]
  - Gait disturbance [Not Recovered/Not Resolved]
  - Eyelid pain [Not Recovered/Not Resolved]
  - Paraesthesia oral [Not Recovered/Not Resolved]
  - Tinnitus [Not Recovered/Not Resolved]
  - Hearing impaired [Not Recovered/Not Resolved]
  - Rhinalgia [Not Recovered/Not Resolved]
  - Myalgia [Not Recovered/Not Resolved]
  - Hypoaesthesia [Not Recovered/Not Resolved]
  - Photophobia [Not Recovered/Not Resolved]
  - Hyperacusis [Not Recovered/Not Resolved]
  - Insomnia [Not Recovered/Not Resolved]
  - Asthenia [Not Recovered/Not Resolved]

NARRATIVE: CASE EVENT DATE: 1999
